FAERS Safety Report 11475236 (Version 1)
Quarter: 2015Q3

REPORT INFORMATION
  Report Type: Spontaneous
  Country: US (occurrence: None)
  Receive Date: 20150908
  Receipt Date: 20150908
  Transmission Date: 20151125
  Serious: Yes (Other)
  Sender: FDA-Public Use
  Company Number: None

PATIENT
  Age: 62 Year
  Sex: Female
  Weight: 55.34 kg

DRUGS (8)
  1. LAMOTRIGINE EXTENDED RELEASE [Suspect]
     Active Substance: LAMOTRIGINE
     Indication: BIPOLAR II DISORDER
     Dosage: TAKEN BY MOUTH
     Dates: start: 20150713, end: 20150901
  2. ESTRACE [Concomitant]
     Active Substance: ESTRADIOL
  3. TRAMADOL. [Concomitant]
     Active Substance: TRAMADOL
  4. MULTI-VITAMIN [Concomitant]
     Active Substance: .ALPHA.-TOCOPHEROL ACETATE, DL-\ASCORBIC ACID\CYANOCOBALAMIN\FLUORIDE ION\FOLIC ACID\NIACIN\PYRIDOXINE\RIBOFLAVIN\THIAMINE\VITAMIN A\VITAMIN D
  5. FISH OIL [Concomitant]
     Active Substance: FISH OIL
  6. BABY ASPIRIN [Concomitant]
     Active Substance: ASPIRIN
  7. COQ10 [Concomitant]
     Active Substance: UBIDECARENONE
  8. VITAMIN D [Concomitant]
     Active Substance: CHOLECALCIFEROL

REACTIONS (9)
  - Lethargy [None]
  - Disturbance in attention [None]
  - Arthralgia [None]
  - Depersonalisation [None]
  - Product substitution issue [None]
  - Fatigue [None]
  - Asthenia [None]
  - Myalgia [None]
  - Product quality issue [None]

NARRATIVE: CASE EVENT DATE: 20150713
